FAERS Safety Report 9658557 (Version 2)
Quarter: 2013Q4

REPORT INFORMATION
  Report Type: Spontaneous
  Country: US (occurrence: US)
  Receive Date: 20131030
  Receipt Date: 20131030
  Transmission Date: 20140711
  Serious: No
  Sender: FDA-Public Use
  Company Number: US-PURDUE-USA-2010-0055540

PATIENT
  Age: 58 Year
  Sex: Male
  Weight: 72.56 kg

DRUGS (2)
  1. OXYCONTIN (NDA 22-272) [Suspect]
     Indication: PAIN IN EXTREMITY
     Dosage: 20 MG, BID
  2. OXYCONTIN (NDA 22-272) [Suspect]
     Indication: NEUROPATHY PERIPHERAL

REACTIONS (3)
  - Muscle spasms [Recovering/Resolving]
  - Gait disturbance [Unknown]
  - Limb discomfort [Unknown]
